FAERS Safety Report 5270400-9 (Version None)
Quarter: 2007Q1

REPORT INFORMATION
  Report Type: 
  Country: None (occurrence: None)
  Receive Date: 20070320
  Receipt Date: 20070308
  Transmission Date: 20070707
  Serious: Yes (Hospitalization, Other)
  Sender: FDA-Public Use
  Company Number: US-PFIZER INC-2007018465

PATIENT
  Sex: Female
  Weight: 79 kg

DRUGS (3)
  1. CHANTIX [Suspect]
     Dates: start: 20070201, end: 20070305
  2. IBUPROFEN [Concomitant]
  3. ADVAIR DISKUS 100/50 [Concomitant]

REACTIONS (4)
  - EPISTAXIS [None]
  - HAEMATOCRIT DECREASED [None]
  - HAEMOGLOBIN DECREASED [None]
  - HAEMORRHAGE [None]
